FAERS Safety Report 13831342 (Version 3)
Quarter: 2018Q1

REPORT INFORMATION
  Report Type: Report from Study
  Country: US (occurrence: US)
  Receive Date: 20170803
  Receipt Date: 20180213
  Transmission Date: 20180508
  Serious: Yes (Hospitalization, Other)
  Sender: FDA-Public Use
  Company Number: US-B.I. PHARMACEUTICALS,INC./RIDGEFIELD-2015-BI-57103BP

PATIENT
  Sex: Female

DRUGS (5)
  1. OFEV [Suspect]
     Active Substance: NINTEDANIB
     Indication: IDIOPATHIC PULMONARY FIBROSIS
     Route: 048
     Dates: start: 20150928
  2. OFEV [Suspect]
     Active Substance: NINTEDANIB
     Route: 048
  3. OFEV [Suspect]
     Active Substance: NINTEDANIB
     Route: 048
  4. ELIQUIS [Concomitant]
     Active Substance: APIXABAN
     Indication: PRODUCT USED FOR UNKNOWN INDICATION
     Route: 065
  5. PREDNISONE. [Concomitant]
     Active Substance: PREDNISONE
     Indication: PRODUCT USED FOR UNKNOWN INDICATION
     Route: 065

REACTIONS (26)
  - Dry mouth [Unknown]
  - Paronychia [Unknown]
  - Oral fungal infection [Unknown]
  - Ulcer [Unknown]
  - Productive cough [Unknown]
  - Cough [Unknown]
  - Sputum discoloured [Unknown]
  - Angina pectoris [Unknown]
  - Liver function test increased [Unknown]
  - Decreased appetite [Unknown]
  - Chest pain [Unknown]
  - Pulmonary thrombosis [Unknown]
  - Lip dry [Unknown]
  - Chapped lips [Unknown]
  - Diarrhoea [Unknown]
  - Dry eye [Unknown]
  - Abdominal pain upper [Unknown]
  - Dizziness [Unknown]
  - Gastrooesophageal reflux disease [Unknown]
  - Sinusitis [Unknown]
  - Pain in extremity [Unknown]
  - Dyspnoea [Unknown]
  - Drug ineffective [Unknown]
  - Weight decreased [Unknown]
  - Fungal skin infection [Unknown]
  - Abdominal discomfort [Unknown]
